FAERS Safety Report 21304858 (Version 1)
Quarter: 2022Q3

REPORT INFORMATION
  Report Type: Report from Study
  Country: US (occurrence: US)
  Receive Date: 20220907
  Receipt Date: 20220907
  Transmission Date: 20221027
  Serious: Yes (Other)
  Sender: FDA-Public Use
  Company Number: US-BRISTOL-MYERS SQUIBB COMPANY-2022-099185

PATIENT
  Age: 65 Year
  Sex: Male
  Weight: 96.6 kg

DRUGS (1)
  1. REVLIMID [Suspect]
     Active Substance: LENALIDOMIDE
     Indication: Plasma cell myeloma
     Dosage: DAILY FO 21 DAYS
     Route: 048
     Dates: start: 20210322

REACTIONS (1)
  - Upper limb fracture [Unknown]
